FAERS Safety Report 7910202-5 (Version None)
Quarter: 2011Q4

REPORT INFORMATION
  Report Type: 
  Country: None (occurrence: None)
  Receive Date: 20111111
  Receipt Date: 20111108
  Transmission Date: 20120403
  Serious: Yes (Death, Life-Threatening, Other)
  Sender: FDA-Public Use
  Company Number: GB-CEPHALON-2011005481

PATIENT
  Age: 52 Year
  Sex: Female
  Weight: 95 kg

DRUGS (25)
  1. CANDESARTAN CILEXETIL [Concomitant]
  2. METOCLOPRAMIDE [Concomitant]
  3. BENDAMUSTINE HCL [Suspect]
     Indication: CHRONIC LYMPHOCYTIC LEUKAEMIA
     Route: 042
     Dates: start: 20110804, end: 20110805
  4. RISEDRONIC ACID [Concomitant]
  5. ALLOPURINOL [Concomitant]
  6. CALCICHEW D3 FORTE [Concomitant]
  7. SENNA [Concomitant]
  8. MABTHERA [Suspect]
     Indication: CHRONIC LYMPHOCYTIC LEUKAEMIA
     Route: 042
     Dates: start: 20110804, end: 20110804
  9. ACYCLOVIR [Concomitant]
  10. FLUCONAZOLE [Concomitant]
  11. FLUDARA [Concomitant]
     Dates: start: 20010101
  12. RANITIDINE [Concomitant]
  13. DAPSONE [Concomitant]
  14. MONOCLONAL ANTIBODIES [Concomitant]
     Dates: start: 20090101
  15. LACTULOSE [Concomitant]
  16. OMEPRAZOLE [Concomitant]
  17. ONDANSETRON [Concomitant]
  18. DEXAMETHASONE [Concomitant]
  19. ATORVASTATIN [Concomitant]
  20. PROMETHAZINE [Concomitant]
  21. HYDROCORTISONE [Concomitant]
  22. PREDNISOLONE [Concomitant]
  23. CAMPATH [Concomitant]
     Dates: start: 20100101
  24. CETIRIZINE HYDROCHLORIDE [Concomitant]
  25. LEVOTHYROXINE SODIUM [Concomitant]

REACTIONS (1)
  - PROGRESSIVE MULTIFOCAL LEUKOENCEPHALOPATHY [None]
